FAERS Safety Report 14749909 (Version 2)
Quarter: 2018Q2

REPORT INFORMATION
  Report Type: Spontaneous
  Country: FR (occurrence: FR)
  Receive Date: 20180412
  Receipt Date: 20180501
  Transmission Date: 20180711
  Serious: Yes (Other)
  Sender: FDA-Public Use
  Company Number: FR-009507513-1804FRA003886

PATIENT
  Sex: Male

DRUGS (2)
  1. AERIUS [Suspect]
     Active Substance: DESLORATADINE
     Dosage: 5 ML, BID (5 ML IN THE MORNING AND EVENING)
     Route: 048
  2. AERIUS [Suspect]
     Active Substance: DESLORATADINE
     Dosage: HALF TABLET
     Route: 048

REACTIONS (6)
  - Drug administered to patient of inappropriate age [Unknown]
  - Asthmatic crisis [Unknown]
  - Drug ineffective [Unknown]
  - Wrong technique in product usage process [Unknown]
  - Product prescribing issue [Unknown]
  - Off label use [Unknown]
